FAERS Safety Report 5919572-0 (Version None)
Quarter: 2008Q4

REPORT INFORMATION
  Report Type: 
  Country: None (occurrence: None)
  Receive Date: 20081015
  Receipt Date: 20080514
  Transmission Date: 20090506
  Serious: Yes (Other)
  Sender: FDA-Public Use
  Company Number: US-BRISTOL-MYERS SQUIBB COMPANY-14063028

PATIENT
  Age: 5 Decade
  Sex: Female

DRUGS (2)
  1. KENALOG-40 [Suspect]
     Route: 008
     Dates: start: 20071128, end: 20071128
  2. ISOVUE-300 [Concomitant]

REACTIONS (2)
  - MONOPLEGIA [None]
  - URTICARIA [None]
